FAERS Safety Report 25023801 (Version 1)
Quarter: 2025Q1

REPORT INFORMATION
  Report Type: Spontaneous
  Country: FR (occurrence: FR)
  Receive Date: 20250228
  Receipt Date: 20250228
  Transmission Date: 20250408
  Serious: Yes (Hospitalization)
  Sender: CHEPLAPHARM
  Company Number: None

PATIENT
  Age: 53 Year
  Sex: Female
  Weight: 73 kg

DRUGS (12)
  1. VALGANCICLOVIR [Suspect]
     Active Substance: VALGANCICLOVIR
     Indication: Antibiotic prophylaxis
     Dosage: DAILY DOSE: 900 MILLIGRAM
     Route: 048
     Dates: start: 20241224
  2. BACTRIM [Suspect]
     Active Substance: SULFAMETHOXAZOLE\TRIMETHOPRIM
     Indication: Antibiotic prophylaxis
     Dosage: DAILY DOSE: 1 DOSAGE FORM
     Route: 048
     Dates: start: 20250115, end: 20250203
  3. ERYTHROMYCIN [Suspect]
     Active Substance: ERYTHROMYCIN
     Indication: Antibiotic prophylaxis
     Dosage: DAILY DOSE: 1 DOSAGE FORM
     Route: 042
     Dates: start: 20250118, end: 20250130
  4. LANSOPRAZOLE [Suspect]
     Active Substance: LANSOPRAZOLE
     Indication: Dyspepsia
     Dosage: DAILY DOSE: 15 MILLIGRAM
     Route: 048
     Dates: start: 20250115
  5. AMITRIPTYLINE HYDROCHLORIDE [Suspect]
     Active Substance: AMITRIPTYLINE HYDROCHLORIDE
     Indication: Anxiety
     Dosage: DRINKABLE SOLUTION IN DROPS ?DAILY DOSE: 10 MILLIGRAM
     Route: 048
     Dates: start: 20250127, end: 20250130
  6. LOVENOX [Suspect]
     Active Substance: ENOXAPARIN SODIUM
     Indication: Thrombosis prophylaxis
     Dosage: INJECTABLE SOLUTION IN PRE-FILLED SYRINGE; ANTI-XA/0.4 ML?DAILY DOSE: 4000 IU (INTERNATIONAL UNIT)
     Route: 058
     Dates: start: 20241224
  7. PROGRAF [Suspect]
     Active Substance: TACROLIMUS
     Indication: Prophylaxis against transplant rejection
     Dosage: DAILY DOSE: 6.5 MILLIGRAM
     Route: 048
     Dates: start: 20241224
  8. CELLCEPT [Suspect]
     Active Substance: MYCOPHENOLATE MOFETIL
     Indication: Prophylaxis against transplant rejection
     Dosage: DAILY DOSE: 1 GRAM
     Route: 048
     Dates: start: 20241224
  9. AUGMENTIN [Suspect]
     Active Substance: AMOXICILLIN\CLAVULANATE POTASSIUM
     Indication: Infection
     Dosage: DAILY DOSE: 2 DOSAGE FORM
     Route: 048
     Dates: start: 20250130, end: 20250203
  10. CEFAZOLIN [Suspect]
     Active Substance: CEFAZOLIN
     Dates: start: 20241230, end: 20250114
  11. FUROSEMIDE [Suspect]
     Active Substance: FUROSEMIDE
     Dates: start: 20241230, end: 20250114
  12. LEVOFLOXACIN [Suspect]
     Active Substance: LEVOFLOXACIN
     Dates: start: 20250107, end: 20250114

REACTIONS (2)
  - Mixed liver injury [Not Recovered/Not Resolved]
  - Off label use [Unknown]

NARRATIVE: CASE EVENT DATE: 20241224
